FAERS Safety Report 4399231-9 (Version None)
Quarter: 2004Q2

REPORT INFORMATION
  Report Type: 
  Country: None (occurrence: None)
  Receive Date: 20040621
  Receipt Date: 20031029
  Transmission Date: 20050107
  Serious: Yes (Other)
  Sender: FDA-Public Use
  Company Number: USA-2003-0006730

PATIENT
  Age: 32 Year
  Sex: Female
  Weight: 64.4 kg

DRUGS (4)
  1. OXYCONTIN [Suspect]
     Indication: PAIN
     Dosage: 0 MG, Q12H, ORAL
     Route: 048
     Dates: start: 20020227
  2. PROZAC [Concomitant]
  3. TENORETIC [Concomitant]
  4. DEPO-PROVERA [Concomitant]

REACTIONS (3)
  - DRUG DEPENDENCE [None]
  - EMOTIONAL DISTRESS [None]
  - PAIN [None]
